FAERS Safety Report 7611174-3 (Version None)
Quarter: 2011Q3

REPORT INFORMATION
  Report Type: 
  Country: None (occurrence: None)
  Receive Date: 20110715
  Receipt Date: 20110630
  Transmission Date: 20111222
  Serious: Yes (Hospitalization)
  Sender: FDA-Public Use
  Company Number: FR-JNJFOC-20110701353

PATIENT
  Age: 47 Year
  Sex: Male

DRUGS (2)
  1. REMICADE [Suspect]
     Route: 042
     Dates: start: 20110406
  2. REMICADE [Suspect]
     Indication: ANKYLOSING SPONDYLITIS
     Route: 042
     Dates: start: 20110527

REACTIONS (6)
  - OROPHARYNGEAL DISCOMFORT [None]
  - LUNG DISORDER [None]
  - INFUSION RELATED REACTION [None]
  - HYPERSENSITIVITY [None]
  - PNEUMONIA [None]
  - MALAISE [None]
